FAERS Safety Report 10010099 (Version 1)
Quarter: 2014Q1

REPORT INFORMATION
  Report Type: Spontaneous
  Country: US (occurrence: US)
  Receive Date: 20140312
  Receipt Date: 20140312
  Transmission Date: 20141002
  Serious: No
  Sender: FDA-Public Use
  Company Number: US-INCYTE CORPORATION-2013IN001448

PATIENT
  Age: 71 Year
  Sex: Male

DRUGS (7)
  1. JAKAFI [Suspect]
     Indication: MYELOFIBROSIS
     Dosage: 15 MG, BID
     Route: 048
  2. ATENOLOL [Concomitant]
  3. TERAZOSIN [Concomitant]
  4. HYDROCHLOROTHIAZIDE [Concomitant]
  5. ALLOPURINOL [Concomitant]
  6. HYDROXYUREA [Concomitant]
  7. ANDROXY [Concomitant]

REACTIONS (2)
  - Malaise [Unknown]
  - Drug ineffective [Unknown]
